FAERS Safety Report 9399193 (Version 1)
Quarter: 2013Q3

REPORT INFORMATION
  Report Type: Spontaneous
  Country: CN (occurrence: None)
  Receive Date: 20130709
  Receipt Date: 20130709
  Transmission Date: 20140515
  Serious: Yes (Hospitalization)
  Sender: FDA-Public Use
  Company Number: 2013P1011315

PATIENT
  Age: 5 Year
  Sex: Female

DRUGS (1)
  1. ALBENDAZOLE [Suspect]
     Indication: ASCARIASIS
     Route: 048
     Dates: start: 20120805, end: 20120805

REACTIONS (9)
  - Hypersensitivity [None]
  - Diarrhoea [None]
  - Pyrexia [None]
  - Eyelid oedema [None]
  - Local swelling [None]
  - Dry mouth [None]
  - Drug hypersensitivity [None]
  - Pyrexia [None]
  - Headache [None]
